FAERS Safety Report 24307329 (Version 2)
Quarter: 2024Q3

REPORT INFORMATION
  Report Type: Report from Study
  Country: CO (occurrence: CO)
  Receive Date: 20240911
  Receipt Date: 20240923
  Transmission Date: 20241017
  Serious: Yes (Life-Threatening)
  Sender: AMGEN
  Company Number: CO-AMGEN-COLSL2024089652

PATIENT
  Age: 55 Year
  Sex: Male

DRUGS (2)
  1. NPLATE [Suspect]
     Active Substance: ROMIPLOSTIM
     Indication: Immune thrombocytopenia
     Dosage: 770 MICROGRAM
     Route: 058
  2. NPLATE [Suspect]
     Active Substance: ROMIPLOSTIM
     Dosage: 693 MICROGRAM/OTHER
     Route: 058

REACTIONS (1)
  - Thrombocytosis [Recovered/Resolved]
